FAERS Safety Report 21689295 (Version 1)
Quarter: 2022Q4

REPORT INFORMATION
  Report Type: Spontaneous
  Country: PL (occurrence: PL)
  Receive Date: 20221206
  Receipt Date: 20221206
  Transmission Date: 20230112
  Serious: Yes (Hospitalization, Other)
  Sender: FDA-Public Use
  Company Number: None

PATIENT

DRUGS (1)
  1. DICLOFENAC POTASSIUM [Suspect]
     Active Substance: DICLOFENAC POTASSIUM
     Indication: Back pain
     Dosage: 2 DF, QD
     Route: 048
     Dates: start: 20210108, end: 20210109

REACTIONS (9)
  - Stevens-Johnson syndrome [Recovering/Resolving]
  - Genital erosion [Recovering/Resolving]
  - Lip erosion [Recovering/Resolving]
  - Rhinitis [Recovering/Resolving]
  - Erythema [Recovering/Resolving]
  - Blister [Recovering/Resolving]
  - Rash macular [Recovering/Resolving]
  - Conjunctival hyperaemia [Recovering/Resolving]
  - Skin lesion [Recovering/Resolving]

NARRATIVE: CASE EVENT DATE: 20210109
